FAERS Safety Report 20382127 (Version 1)
Quarter: 2022Q1

REPORT INFORMATION
  Report Type: Spontaneous
  Country: FR (occurrence: FR)
  Receive Date: 20220127
  Receipt Date: 20220127
  Transmission Date: 20220423
  Serious: Yes (Life-Threatening)
  Sender: FDA-Public Use
  Company Number: None

PATIENT
  Age: 1 Day
  Sex: Female

DRUGS (1)
  1. COPAXONE [Suspect]
     Active Substance: GLATIRAMER ACETATE
     Indication: Multiple sclerosis
     Dosage: NOT KNOWN
     Route: 064
     Dates: start: 20210101

REACTIONS (1)
  - Otospondylomegaepiphyseal dysplasia [Unknown]

NARRATIVE: CASE EVENT DATE: 20210909
